FAERS Safety Report 9095766 (Version 1)
Quarter: 2013Q1

REPORT INFORMATION
  Report Type: Spontaneous
  Country: US (occurrence: US)
  Receive Date: 20130219
  Receipt Date: 20130219
  Transmission Date: 20140127
  Serious: Yes (Other)
  Sender: FDA-Public Use
  Company Number: US-PFIZER INC-2013053143

PATIENT
  Age: 8 Year
  Sex: Female
  Weight: 20.41 kg

DRUGS (2)
  1. ROBITUSSIN [Suspect]
     Indication: COUGH
     Dosage: TWO TEASPOONFULS, ONCE ONLY
     Dates: start: 20130202, end: 20130202
  2. ROBITUSSIN [Suspect]
     Indication: NASOPHARYNGITIS

REACTIONS (2)
  - Visual acuity reduced [Not Recovered/Not Resolved]
  - Mydriasis [Recovered/Resolved]
